FAERS Safety Report 6620810-X (Version None)
Quarter: 2010Q1

REPORT INFORMATION
  Report Type: 
  Country: None (occurrence: None)
  Receive Date: 20100309
  Receipt Date: 20090824
  Transmission Date: 20100710
  Serious: Yes (Other)
  Sender: FDA-Public Use
  Company Number: JP-PFIZER INC-2010028123

PATIENT
  Age: 82 Year
  Sex: Male

DRUGS (1)
  1. SEIBULE [Suspect]
     Dosage: 150MG DAILY
     Route: 048
     Dates: start: 20060801, end: 20090815

REACTIONS (1)
  - LIVER DISORDER [None]
